FAERS Safety Report 24371150 (Version 1)
Quarter: 2024Q3

REPORT INFORMATION
  Report Type: Spontaneous
  Country: ES (occurrence: ES)
  Receive Date: 20240927
  Receipt Date: 20240927
  Transmission Date: 20241017
  Serious: Yes (Life-Threatening, Hospitalization)
  Sender: ABBVIE
  Company Number: None

PATIENT
  Age: 28 Year
  Sex: Male

DRUGS (6)
  1. CEFTAROLINE FOSAMIL [Suspect]
     Active Substance: CEFTAROLINE FOSAMIL
     Indication: Endocarditis staphylococcal
     Dosage: TIME INTERVAL: 0.33333333 DAYS: 600 MG, 3X/DAY (EVERY 8H)
     Route: 042
     Dates: start: 20240717, end: 20240802
  2. HYDRALAZINE HYDROCHLORIDE [Concomitant]
     Active Substance: HYDRALAZINE HYDROCHLORIDE
     Indication: Product used for unknown indication
     Dosage: TIME INTERVAL: 0.33333333 DAYS: 10 MG, 3X/DAY (EVERY 8H)
     Route: 042
     Dates: start: 20240723, end: 20240729
  3. MEROPENEM [Suspect]
     Active Substance: MEROPENEM
     Indication: Endocarditis staphylococcal
     Dosage: TIME INTERVAL: 0.33333333 DAYS: 2 G, 3X/DAY (EVERY 8H)
     Route: 042
     Dates: start: 20240722, end: 20240801
  4. HEPARIN SODIUM [Concomitant]
     Active Substance: HEPARIN SODIUM
     Indication: Product used for unknown indication
     Route: 042
     Dates: start: 20240723, end: 20240728
  5. VANCOMYCIN HYDROCHLORIDE [Suspect]
     Active Substance: VANCOMYCIN HYDROCHLORIDE
     Indication: Endocarditis staphylococcal
     Dosage: 500 MG, 2X/DAY (EVERY 12H)
     Route: 042
     Dates: start: 20240717, end: 20240801
  6. AMLODIPINE [Suspect]
     Active Substance: AMLODIPINE BESYLATE
     Indication: Product used for unknown indication
     Dosage: 10 MG, 1X/DAY
     Route: 048
     Dates: start: 20240724, end: 20240729

REACTIONS (2)
  - Toxic epidermal necrolysis [Recovered/Resolved]
  - Off label use [Unknown]

NARRATIVE: CASE EVENT DATE: 20240717
